FAERS Safety Report 6025881-X (Version None)
Quarter: 2008Q4

REPORT INFORMATION
  Report Type: 
  Country: None (occurrence: None)
  Receive Date: 20081223
  Receipt Date: 20081215
  Transmission Date: 20090506
  Serious: Yes (Other)
  Sender: FDA-Public Use
  Company Number: CHPA2008US22497

PATIENT
  Age: 85 Year
  Sex: Female
  Weight: 48.1 kg

DRUGS (1)
  1. THERAFLU NIGHTTIME SEVERE COLD WARMING SYRUP(NCH)(PARACETAMOL, DIPHENH [Suspect]
     Indication: NASOPHARYNGITIS
     Dosage: 1 TSP, TID, ORAL
     Route: 048
     Dates: end: 20081212

REACTIONS (1)
  - BLOOD PRESSURE INCREASED [None]
